FAERS Safety Report 4517220-8 (Version None)
Quarter: 2004Q4

REPORT INFORMATION
  Report Type: 
  Country: None (occurrence: None)
  Receive Date: 20041202
  Receipt Date: 20041122
  Transmission Date: 20050328
  Serious: Yes (Life-Threatening, Disabling)
  Sender: FDA-Public Use
  Company Number: US-MERCK-0411USA03579

PATIENT
  Age: 71 Year
  Sex: Male

DRUGS (4)
  1. VIOXX [Suspect]
     Indication: ARTHRITIS
     Route: 048
     Dates: start: 20030101, end: 20040101
  2. NORVASC [Concomitant]
     Route: 065
  3. ZIAC [Concomitant]
     Route: 065
  4. ACETAMINOPHEN [Concomitant]
     Route: 065

REACTIONS (2)
  - ASTHENIA [None]
  - HYPERHIDROSIS [None]
